FAERS Safety Report 9476046 (Version 1)
Quarter: 2013Q3

REPORT INFORMATION
  Report Type: Spontaneous
  Country: US (occurrence: None)
  Receive Date: 20130822
  Receipt Date: 20130822
  Transmission Date: 20140515
  Serious: Yes (Life-Threatening, Hospitalization)
  Sender: FDA-Public Use
  Company Number: None

PATIENT
  Age: 45 Year
  Sex: Male
  Weight: 67.13 kg

DRUGS (2)
  1. VANCOMYCIN [Suspect]
     Route: 042
     Dates: start: 20130809
  2. ZOSYN [Suspect]
     Route: 042
     Dates: start: 20130809

REACTIONS (5)
  - Hypoxia [None]
  - Renal failure acute [None]
  - Pyrexia [None]
  - Respiratory distress [None]
  - Dyspnoea [None]
